FAERS Safety Report 23488789 (Version 5)
Quarter: 2024Q2

REPORT INFORMATION
  Report Type: Spontaneous
  Country: US (occurrence: US)
  Receive Date: 20240206
  Receipt Date: 20240514
  Transmission Date: 20240716
  Serious: Yes (Other)
  Sender: FDA-Public Use
  Company Number: US-SA-SAC20240131001057

PATIENT
  Age: 80 Year
  Sex: Male

DRUGS (2)
  1. DUPIXENT [Suspect]
     Active Substance: DUPILUMAB
     Indication: Neurodermatitis
     Dosage: 600 MG, 1X
     Route: 058
     Dates: start: 20231002, end: 20231002
  2. DUPIXENT [Suspect]
     Active Substance: DUPILUMAB
     Dosage: 300 MG, QOW
     Route: 058
     Dates: start: 202310

REACTIONS (12)
  - Squamous cell carcinoma [Unknown]
  - Nodule [Unknown]
  - Dandruff [Unknown]
  - Condition aggravated [Unknown]
  - Injection site pain [Unknown]
  - Neurodermatitis [Unknown]
  - Scar [Unknown]
  - Erythema [Unknown]
  - Skin lesion [Unknown]
  - Pruritus [Unknown]
  - Therapeutic response shortened [Unknown]
  - Product administered at inappropriate site [Unknown]

NARRATIVE: CASE EVENT DATE: 20231002
